FAERS Safety Report 19929954 (Version 1)
Quarter: 2021Q4

REPORT INFORMATION
  Report Type: Spontaneous
  Country: US (occurrence: US)
  Receive Date: 20211007
  Receipt Date: 20211007
  Transmission Date: 20220303
  Serious: No
  Sender: FDA-Public Use
  Company Number: US-AMNEAL PHARMACEUTICALS-2020-AMRX-04093

PATIENT

DRUGS (2)
  1. ACETAMINOPHEN\HYDROCODONE [Suspect]
     Active Substance: ACETAMINOPHEN\HYDROCODONE
     Indication: Pain
     Dosage: UNK (1/2 AT A TIME)
     Route: 065
     Dates: start: 2020, end: 2020
  2. ACETAMINOPHEN\HYDROCODONE [Suspect]
     Active Substance: ACETAMINOPHEN\HYDROCODONE
     Dosage: UNK (A WHOLE ONE)
     Route: 065
     Dates: start: 20201229

REACTIONS (5)
  - Feeling abnormal [Unknown]
  - Drug ineffective [Unknown]
  - Somnolence [Unknown]
  - Malaise [Unknown]
  - Product substitution issue [Unknown]

NARRATIVE: CASE EVENT DATE: 20200101
